FAERS Safety Report 9423025 (Version 12)
Quarter: 2015Q2

REPORT INFORMATION
  Report Type: Spontaneous
  Country: US (occurrence: US)
  Receive Date: 20130726
  Receipt Date: 20150630
  Transmission Date: 20150821
  Serious: Yes (Hospitalization, Other)
  Sender: FDA-Public Use
  Company Number: US-GLAXOSMITHKLINE-A1033960A

PATIENT
  Age: 68 Year
  Sex: Female

DRUGS (13)
  1. ANORO ELLIPTA [Suspect]
     Active Substance: UMECLIDINIUM BROMIDE\VILANTEROL TRIFENATATE
     Indication: DYSPNOEA
  2. FLOVENT [Suspect]
     Active Substance: FLUTICASONE PROPIONATE
     Indication: CHRONIC OBSTRUCTIVE PULMONARY DISEASE
     Dosage: 2 PUFF(S), BID
     Route: 055
     Dates: start: 1984, end: 2004
  3. FLOVENT [Suspect]
     Active Substance: FLUTICASONE PROPIONATE
     Indication: EMPHYSEMA
  4. VENTOLIN [Suspect]
     Active Substance: ALBUTEROL SULFATE
     Indication: DYSPNOEA
  5. VENTOLIN [Suspect]
     Active Substance: ALBUTEROL SULFATE
     Indication: ASTHMA
     Dosage: 90 MCG, 2 PUFFS PRN
     Route: 055
     Dates: start: 20090311
  6. VENTOLIN [Suspect]
     Active Substance: ALBUTEROL SULFATE
     Indication: CHRONIC OBSTRUCTIVE PULMONARY DISEASE
     Dosage: UNK
  7. ADVAIR HFA [Suspect]
     Active Substance: FLUTICASONE PROPIONATE\SALMETEROL XINAFOATE
     Indication: PRODUCT USED FOR UNKNOWN INDICATION
     Dosage: UNK, U
     Route: 055
     Dates: start: 201006
  8. ANORO ELLIPTA [Suspect]
     Active Substance: UMECLIDINIUM BROMIDE\VILANTEROL TRIFENATATE
     Indication: BRONCHITIS CHRONIC
     Dosage: 1 PUFF(S), QD
     Route: 065
     Dates: start: 20140820
  9. METHADONE [Concomitant]
     Active Substance: METHADONE HYDROCHLORIDE
  10. VENTOLIN NEBULIZER [Concomitant]
  11. XANAX [Concomitant]
     Active Substance: ALPRAZOLAM
  12. ANORO ELLIPTA [Suspect]
     Active Substance: UMECLIDINIUM BROMIDE\VILANTEROL TRIFENATATE
     Indication: EMPHYSEMA
  13. ALBUTEROL NEBULIZER [Concomitant]
     Active Substance: ALBUTEROL

REACTIONS (32)
  - Candida infection [Not Recovered/Not Resolved]
  - Chemotherapy [Unknown]
  - Bronchostenosis [Unknown]
  - Back pain [Unknown]
  - Insomnia [Not Recovered/Not Resolved]
  - Dysphonia [Not Recovered/Not Resolved]
  - Hospitalisation [Unknown]
  - Pain [Unknown]
  - Vocal cord inflammation [Not Recovered/Not Resolved]
  - Pharyngeal inflammation [Unknown]
  - Drug ineffective [Not Recovered/Not Resolved]
  - Neoplasm [Unknown]
  - Shoulder operation [Unknown]
  - Dyspnoea [Unknown]
  - Squamous cell carcinoma of lung [Not Recovered/Not Resolved]
  - Aphonia [Not Recovered/Not Resolved]
  - Lung disorder [Not Recovered/Not Resolved]
  - Drug dose omission [Unknown]
  - Lung carcinoma cell type unspecified stage IV [Unknown]
  - Pharyngeal erythema [Unknown]
  - Bronchitis [Not Recovered/Not Resolved]
  - Myocardial infarction [Unknown]
  - Pneumonectomy [Unknown]
  - Musculoskeletal pain [Unknown]
  - Choking sensation [Not Recovered/Not Resolved]
  - Radiotherapy [Unknown]
  - Chronic obstructive pulmonary disease [Unknown]
  - Infection [Not Recovered/Not Resolved]
  - Malaise [Not Recovered/Not Resolved]
  - Off label use [Not Recovered/Not Resolved]
  - Haemoptysis [Not Recovered/Not Resolved]
  - Weight decreased [Unknown]

NARRATIVE: CASE EVENT DATE: 2004
